FAERS Safety Report 11391834 (Version 1)
Quarter: 2015Q3

REPORT INFORMATION
  Report Type: Spontaneous
  Country: US (occurrence: US)
  Receive Date: 20150818
  Receipt Date: 20150818
  Transmission Date: 20151125
  Serious: Yes (Hospitalization)
  Sender: FDA-Public Use
  Company Number: CHPA2015US008850

PATIENT
  Age: 77 Year
  Sex: Male

DRUGS (2)
  1. GAS-X [Suspect]
     Active Substance: DIMETHICONE
     Dosage: UNK
     Route: 048
     Dates: start: 2015
  2. GAS-X [Suspect]
     Active Substance: DIMETHICONE
     Indication: PRODUCT USED FOR UNKNOWN INDICATION
     Dosage: 2 DF, ONCE/SINGLE
     Route: 048
     Dates: start: 20150722, end: 20150722

REACTIONS (2)
  - Feeling abnormal [Recovered/Resolved]
  - Faeces discoloured [Recovered/Resolved]

NARRATIVE: CASE EVENT DATE: 20150723
